FAERS Safety Report 16925807 (Version 1)
Quarter: 2019Q4

REPORT INFORMATION
  Report Type: Spontaneous
  Country: DE (occurrence: DE)
  Receive Date: 20191016
  Receipt Date: 20191016
  Transmission Date: 20200122
  Serious: Yes (Life-Threatening)
  Sender: FDA-Public Use
  Company Number: DE-B.I. PHARMACEUTICALS,INC./RIDGEFIELD-2019-12-107475

PATIENT
  Age: 65 Year
  Sex: Female
  Weight: 75 kg

DRUGS (14)
  1. BISOPROLOL [Concomitant]
     Active Substance: BISOPROLOL
     Indication: HYPERTENSION
     Route: 048
  2. TILIDIN [Concomitant]
     Active Substance: NALOXONE HYDROCHLORIDE\TILIDINE HYDROCHLORIDE
     Indication: PROCEDURAL PAIN
     Dosage: DAILY DOSE: 200 MG MILLGRAM(S) EVERY DAYS 2 SEPARATED DOSES
     Route: 048
  3. SIMVASTATIN. [Concomitant]
     Active Substance: SIMVASTATIN
     Indication: PRODUCT USED FOR UNKNOWN INDICATION
     Dosage: DAILY DOSE: 40 MG MILLGRAM(S) EVERY DAYS
     Route: 065
  4. ASPIRIN. [Concomitant]
     Active Substance: ASPIRIN
     Indication: CORONARY ARTERY DISEASE
     Dosage: DAILY DOSE: 100 MG MILLGRAM(S) EVERY DAYS
     Route: 048
  5. PIRITRAMIDE [Concomitant]
     Active Substance: PIRITRAMIDE
     Indication: PROCEDURAL PAIN
     Route: 065
  6. TOREM [TORASEMIDE] [Concomitant]
     Active Substance: TORSEMIDE
     Indication: HYPERTENSION
     Route: 048
  7. ENALAPRIL [Concomitant]
     Active Substance: ENALAPRIL
     Indication: HYPERTENSION
     Dosage: DAILY DOSE: 40 MG MILLGRAM(S) EVERY DAYS 2 SEPARATED DOSES
     Route: 048
  8. METFORMIN [Concomitant]
     Active Substance: METFORMIN HYDROCHLORIDE
     Indication: HYPERTENSION
     Dosage: DAILY DOSE: 2000 MG MILLGRAM(S) EVERY DAYS 2 SEPARATED DOSES
     Route: 048
  9. LANTUS [Concomitant]
     Active Substance: INSULIN GLARGINE
     Indication: TYPE 2 DIABETES MELLITUS
     Route: 058
  10. VICTOZA [Concomitant]
     Active Substance: LIRAGLUTIDE
     Indication: PRODUCT USED FOR UNKNOWN INDICATION
     Dosage: 1.2-0-0
     Route: 058
  11. JARDIANCE [Suspect]
     Active Substance: EMPAGLIFLOZIN
     Indication: TYPE 2 DIABETES MELLITUS
     Route: 048
     Dates: start: 20190913
  12. CLONIDIN [Concomitant]
     Active Substance: CLONIDINE
     Indication: HYPERTENSION
     Dosage: DAILY DOSE: 0.6 MG MILLGRAM(S) EVERY DAYS 2 SEPARATED DOSES
     Route: 048
  13. METAMIZOL [Concomitant]
     Active Substance: METAMIZOLE SODIUM
     Indication: PROCEDURAL PAIN
     Dosage: DAILY DOSE: 4000 MG MILLGRAM(S) EVERY DAYS 4 SEPARATED DOSES
     Route: 048
  14. AMLODIPINE [Concomitant]
     Active Substance: AMLODIPINE BESYLATE
     Indication: PRODUCT USED FOR UNKNOWN INDICATION
     Dosage: DAILY DOSE: 10 MG MILLGRAM(S) EVERY DAYS 2 SEPARATED DOSES
     Route: 065

REACTIONS (2)
  - Metabolic acidosis [Recovered/Resolved]
  - Product prescribing error [Recovered/Resolved]

NARRATIVE: CASE EVENT DATE: 20190917
